FAERS Safety Report 5386185-1 (Version None)
Quarter: 2007Q3

REPORT INFORMATION
  Report Type: 
  Country: None (occurrence: None)
  Receive Date: 20070710
  Receipt Date: 20070710
  Transmission Date: 20080115
  Serious: Yes (Other)
  Sender: FDA-Public Use
  Company Number: None

PATIENT
  Age: 1 Year
  Sex: Female
  Weight: 9.5255 kg

DRUGS (1)
  1. AMOXIL [Suspect]
     Indication: EAR INFECTION
     Dosage: 1 ML 2XDAY PO
     Route: 048
     Dates: start: 20070628, end: 20070704

REACTIONS (13)
  - ABNORMAL BEHAVIOUR [None]
  - BLISTER [None]
  - CONDITION AGGRAVATED [None]
  - DRUG TOXICITY [None]
  - EYE DISCHARGE [None]
  - HERPES VIRUS INFECTION [None]
  - HYPERSENSITIVITY [None]
  - OCULAR HYPERAEMIA [None]
  - ORAL MUCOSAL BLISTERING [None]
  - RASH [None]
  - SNEEZING [None]
  - VOMITING [None]
  - YELLOW SKIN [None]
